FAERS Safety Report 21894444 (Version 2)
Quarter: 2025Q4

REPORT INFORMATION
  Report Type: Spontaneous
  Country: EU (occurrence: EU)
  Receive Date: 20230121
  Receipt Date: 20251004
  Transmission Date: 20260117
  Serious: Yes (Hospitalization, Other)
  Sender: AUROBINDO
  Company Number: EU-TEVA-2022-PT-2841292

PATIENT
  Age: 61 Year
  Sex: Male

DRUGS (1)
  1. IBUPROFEN [Suspect]
     Active Substance: IBUPROFEN
     Indication: Product used for unknown indication
     Dosage: UNK
     Route: 048

REACTIONS (9)
  - Anaphylactic reaction [Recovering/Resolving]
  - Dyspnoea [Recovering/Resolving]
  - Foreign body in throat [Recovering/Resolving]
  - Nasal septum perforation [Recovering/Resolving]
  - Obstructive airways disorder [Recovering/Resolving]
  - Respiratory failure [Recovering/Resolving]
  - Sinusitis [Recovering/Resolving]
  - Wheezing [Recovering/Resolving]
  - NSAID exacerbated respiratory disease [Recovered/Resolved]
